FAERS Safety Report 15634376 (Version 9)
Quarter: 2022Q1

REPORT INFORMATION
  Report Type: Spontaneous
  Country: US (occurrence: US)
  Receive Date: 20181119
  Receipt Date: 20220308
  Transmission Date: 20220424
  Serious: Yes (Hospitalization, Other)
  Sender: FDA-Public Use
  Company Number: US-PFIZER INC-2018463256

PATIENT
  Age: 50 Year
  Sex: Female
  Weight: 95.25 kg

DRUGS (1)
  1. CELEBREX [Suspect]
     Active Substance: CELECOXIB
     Indication: Osteoarthritis
     Dosage: 200 MG, 1X/DAY
     Route: 048

REACTIONS (8)
  - Ileostomy [Unknown]
  - Colorectal cancer stage II [Recovered/Resolved]
  - Drug ineffective [Unknown]
  - Pain [Recovered/Resolved]
  - Sneezing [Unknown]
  - Bowel movement irregularity [Unknown]
  - Intervertebral disc protrusion [Unknown]
  - COVID-19 [Unknown]

NARRATIVE: CASE EVENT DATE: 20170701
